FAERS Safety Report 22005318 (Version 1)
Quarter: 2023Q1

REPORT INFORMATION
  Report Type: Spontaneous
  Country: US (occurrence: US)
  Receive Date: 20230217
  Receipt Date: 20230217
  Transmission Date: 20230417
  Serious: Yes (Hospitalization, Other)
  Sender: FDA-Public Use
  Company Number: US-Hikma Pharmaceuticals USA Inc.-US-H14001-23-00439

PATIENT
  Age: 40 Year
  Sex: Female

DRUGS (13)
  1. REGLAN [Suspect]
     Active Substance: METOCLOPRAMIDE HYDROCHLORIDE
     Indication: Ulcer
     Dosage: UNKNOWN
     Route: 065
     Dates: start: 20221218
  2. REGLAN [Suspect]
     Active Substance: METOCLOPRAMIDE HYDROCHLORIDE
     Indication: Impaired gastric emptying
  3. REGLAN [Suspect]
     Active Substance: METOCLOPRAMIDE HYDROCHLORIDE
     Indication: Condition aggravated
  4. CARAFATE [Suspect]
     Active Substance: SUCRALFATE
     Indication: Ulcer
     Dosage: UNKNOWN
     Route: 065
     Dates: start: 20221218
  5. CARAFATE [Suspect]
     Active Substance: SUCRALFATE
     Indication: Impaired gastric emptying
  6. CARAFATE [Suspect]
     Active Substance: SUCRALFATE
     Indication: Condition aggravated
  7. PROTONIX [Suspect]
     Active Substance: PANTOPRAZOLE SODIUM
     Indication: Ulcer
     Dosage: UNKNOWN
     Route: 065
     Dates: start: 20221218
  8. PROTONIX [Suspect]
     Active Substance: PANTOPRAZOLE SODIUM
     Indication: Impaired gastric emptying
  9. PROTONIX [Suspect]
     Active Substance: PANTOPRAZOLE SODIUM
     Indication: Condition aggravated
  10. BENADRYL [Suspect]
     Active Substance: DIPHENHYDRAMINE HYDROCHLORIDE
     Indication: Eczema
     Dosage: UNKNOWN
     Route: 065
  11. SPIRONOLACTONE [Suspect]
     Active Substance: SPIRONOLACTONE
     Indication: Product used for unknown indication
     Dosage: UNKNOWN
     Route: 065
     Dates: start: 20230113
  12. KEVEYIS [Suspect]
     Active Substance: DICHLORPHENAMIDE
     Indication: Product used for unknown indication
     Dosage: DOSE INCREASED
     Route: 065
     Dates: start: 20230113
  13. KEVEYIS [Suspect]
     Active Substance: DICHLORPHENAMIDE
     Dosage: UNKNOWN
     Route: 065

REACTIONS (7)
  - Paralysis [Unknown]
  - Gait inability [Unknown]
  - Feeding disorder [Unknown]
  - Eczema [Unknown]
  - Pallor [Unknown]
  - Rash [Unknown]
  - Diarrhoea [Unknown]

NARRATIVE: CASE EVENT DATE: 20230101
